FAERS Safety Report 12991847 (Version 3)
Quarter: 2019Q3

REPORT INFORMATION
  Report Type: Spontaneous
  Country: US (occurrence: US)
  Receive Date: 20161201
  Receipt Date: 20190712
  Transmission Date: 20191004
  Serious: Yes (Death, Hospitalization)
  Sender: FDA-Public Use
  Company Number: US-ACTELION-A-NJ2016-146078

PATIENT
  Age: 8 Year
  Sex: Male

DRUGS (7)
  1. TADALAFIL. [Concomitant]
     Active Substance: TADALAFIL
     Dosage: 2 MG, QD
  2. ASA [Concomitant]
     Active Substance: ASPIRIN
     Dosage: 81 MG
  3. DIGOXIN. [Concomitant]
     Active Substance: DIGOXIN
     Dosage: 30 MG, BID
  4. TRACLEER [Suspect]
     Active Substance: BOSENTAN
     Indication: PULMONARY HYPERTENSION
     Dosage: 32 MG, BID
     Route: 048
     Dates: start: 20170517, end: 20190613
  5. REMODULIN [Concomitant]
     Active Substance: TREPROSTINIL
     Dosage: 15 NG/KG, PER MIN
  6. PROAIR HFA [Concomitant]
     Active Substance: ALBUTEROL SULFATE
     Dosage: 2 PUFF
  7. TRACLEER [Suspect]
     Active Substance: BOSENTAN
     Dosage: 31.25 MG, BID
     Route: 048
     Dates: start: 20160504

REACTIONS (4)
  - Device related sepsis [Fatal]
  - Staphylococcus test positive [Fatal]
  - Balloon atrial septostomy [Unknown]
  - Pyrexia [Fatal]

NARRATIVE: CASE EVENT DATE: 20190611
